FAERS Safety Report 5164306-3 (Version None)
Quarter: 2006Q4

REPORT INFORMATION
  Report Type: 
  Country: None (occurrence: None)
  Receive Date: 20061129
  Receipt Date: 20061129
  Transmission Date: 20070319
  Serious: Yes (Other)
  Sender: FDA-Public Use
  Company Number: None

PATIENT
  Age: 64 Year
  Sex: Female
  Weight: 65.7716 kg

DRUGS (2)
  1. ACTONEL [Suspect]
     Indication: OSTEOPOROSIS
     Dosage: 1 ONCE A WEEK
     Dates: start: 20030701, end: 20050701
  2. BONIVA [Suspect]
     Indication: OSTEOPOROSIS
     Dosage: 1 ONCE A MONTH
     Dates: start: 20050701, end: 20060901

REACTIONS (8)
  - DEAFNESS TRANSITORY [None]
  - DEAFNESS UNILATERAL [None]
  - HEADACHE [None]
  - MUSCLE SPASMS [None]
  - MUSCULOSKELETAL STIFFNESS [None]
  - PAIN [None]
  - TOOTH DISORDER [None]
  - VISION BLURRED [None]
